FAERS Safety Report 21100243 (Version 1)
Quarter: 2022Q3

REPORT INFORMATION
  Report Type: Spontaneous
  Country: US (occurrence: None)
  Receive Date: 20220719
  Receipt Date: 20220719
  Transmission Date: 20221027
  Serious: Yes (Other)
  Sender: FDA-Public Use
  Company Number: None

PATIENT
  Age: 77 Year
  Sex: Female

DRUGS (8)
  1. REPATHA [Suspect]
     Active Substance: EVOLOCUMAB
     Indication: Hyperlipidaemia
     Dosage: OTHER FREQUENCY : EVERY 2 WEEKS;?
     Route: 058
     Dates: start: 20220428, end: 20220704
  2. BYSTOLIC [Concomitant]
     Active Substance: NEBIVOLOL HYDROCHLORIDE
  3. LOSARTAN [Concomitant]
     Active Substance: LOSARTAN
  4. MELOXICAM [Concomitant]
     Active Substance: MELOXICAM
  5. ALEVE [Concomitant]
     Active Substance: NAPROXEN SODIUM
  6. FISH OIL [Concomitant]
     Active Substance: FISH OIL
  7. COENZYME Q10 [Concomitant]
     Active Substance: DIETARY SUPPLEMENT\UBIDECARENONE
  8. Multivitamin 50+ [Concomitant]

REACTIONS (6)
  - Myalgia [None]
  - Muscle spasms [None]
  - Pain [None]
  - Muscle spasms [None]
  - Asthenia [None]
  - Walking aid user [None]

NARRATIVE: CASE EVENT DATE: 20220704
